FAERS Safety Report 14593817 (Version 1)
Quarter: 2018Q1

REPORT INFORMATION
  Report Type: Spontaneous
  Country: DK (occurrence: DK)
  Receive Date: 20180302
  Receipt Date: 20180302
  Transmission Date: 20180509
  Serious: Yes (Hospitalization)
  Sender: FDA-Public Use
  Company Number: DK-B.I. PHARMACEUTICALS,INC./RIDGEFIELD-2018-12-000665

PATIENT
  Age: 73 Year
  Sex: Male

DRUGS (9)
  1. CYCLOPHOSPHAMIDE. [Concomitant]
     Active Substance: CYCLOPHOSPHAMIDE
     Indication: DIFFUSE LARGE B-CELL LYMPHOMA
     Dosage: DOSE: 2. DOSE 1372.5 MG AFTER 4 WEEKS, HEREAFTER 3 WEEKS APART, STRENGTH: 200 MG
     Route: 042
     Dates: start: 201701
  2. VINCRISTINE [Concomitant]
     Active Substance: VINCRISTINE
     Indication: DIFFUSE LARGE B-CELL LYMPHOMA
     Dosage: DOSE: 2. DOSE 2 MG AFTER 4 WEEKS, HEREAFTER 3 WEEKS APART, STRENGTH: 1 MG/ML
     Route: 042
     Dates: start: 201701
  3. PREDNISOLONE. [Concomitant]
     Active Substance: PREDNISOLONE
     Indication: DIFFUSE LARGE B-CELL LYMPHOMA
     Route: 048
     Dates: start: 201701, end: 20170503
  4. MAXIDEX [Concomitant]
     Active Substance: DEXAMETHASONE
     Indication: EYE INFLAMMATION
     Dosage: DOSE: 1 DROP IN THE MORNING, MID-DAY AND EVENING, STRENGTH: 1 MG/ML
     Route: 050
     Dates: start: 20180109, end: 20180130
  5. PRADAXA [Suspect]
     Active Substance: DABIGATRAN ETEXILATE MESYLATE
     Indication: THROMBOSIS PROPHYLAXIS
     Dosage: STYRKE: 150 MG.
     Route: 048
     Dates: start: 20141205, end: 20180129
  6. PARACETAMOL [Concomitant]
     Active Substance: ACETAMINOPHEN
     Indication: PAIN
     Dosage: DOSE: 2 TABLETS PER NEED, MAXIMUM 3 TIMES DAILY, STRENGTH: 500 MG
     Route: 048
  7. OXAZEPAM. [Concomitant]
     Active Substance: OXAZEPAM
     Indication: SEDATIVE THERAPY
     Dosage: DOSE: 1 TABLET PER NEED, MAXIMUM 1 DAILY, STRENGTH: 15 MG
     Route: 048
     Dates: start: 20170808
  8. DOXORUBICIN [Concomitant]
     Active Substance: DOXORUBICIN
     Indication: DIFFUSE LARGE B-CELL LYMPHOMA
     Dosage: DOSE: 2. DOSE 90 MG AFTER 4 WEEKS, HEREAFTER 3 WEEKS APART, STRENGTH:10MG
     Route: 042
     Dates: start: 201701
  9. MABTHERA [Concomitant]
     Active Substance: RITUXIMAB
     Indication: DIFFUSE LARGE B-CELL LYMPHOMA
     Dosage: DOSE: 2. DOSE 11.7 MG AFTER 4 WEEKS, HEREAFTER 3 WEEKS APART, STRENGTH: 1400 MG
     Route: 058
     Dates: start: 201701

REACTIONS (3)
  - Vanishing bile duct syndrome [Unknown]
  - Cholestasis [Not Recovered/Not Resolved]
  - Blood alkaline phosphatase increased [Unknown]

NARRATIVE: CASE EVENT DATE: 2016
